FAERS Safety Report 12714082 (Version 3)
Quarter: 2016Q3

REPORT INFORMATION
  Report Type: Spontaneous
  Country: US (occurrence: US)
  Receive Date: 20160905
  Receipt Date: 20160920
  Transmission Date: 20161109
  Serious: No
  Sender: FDA-Public Use
  Company Number: US-PFIZER INC-2016385109

PATIENT
  Age: 80 Year
  Sex: Female
  Weight: 163 kg

DRUGS (3)
  1. TIKOSYN [Suspect]
     Active Substance: DOFETILIDE
     Indication: CARDIAC FAILURE
     Dosage: 250 MCG ONE CAPSULE BY MOUTH TWICE A DAY
     Route: 048
     Dates: start: 201512
  2. ELIQUIS [Suspect]
     Active Substance: APIXABAN
     Indication: CARDIAC FAILURE
     Dosage: 5 MG ONE TABLET BY MOUTH TWICE DAY
     Route: 048
     Dates: start: 201512
  3. LOSARTAN. [Concomitant]
     Active Substance: LOSARTAN
     Indication: HYPERTENSION
     Dosage: 100 MG ONE TABLET BY MOUTH ONCE A DAY
     Route: 048

REACTIONS (1)
  - Product use issue [Unknown]
